FAERS Safety Report 6848103-6 (Version None)
Quarter: 2010Q3

REPORT INFORMATION
  Report Type: 
  Country: None (occurrence: None)
  Receive Date: 20100716
  Receipt Date: 20100706
  Transmission Date: 20110219
  Serious: Yes (Hospitalization)
  Sender: FDA-Public Use
  Company Number: A0868673A

PATIENT
  Age: 86 Year
  Sex: Female

DRUGS (1)
  1. PROMACTA [Suspect]
     Indication: BLOOD DISORDER
     Dosage: 50MG PER DAY
     Route: 048
     Dates: start: 20090414, end: 20100201

REACTIONS (3)
  - DRUG INEFFECTIVE [None]
  - HAEMORRHAGE [None]
  - ULCER [None]
